FAERS Safety Report 10389091 (Version 2)
Quarter: 2014Q3

REPORT INFORMATION
  Report Type: Spontaneous
  Country: US (occurrence: US)
  Receive Date: 20140817
  Receipt Date: 20140817
  Transmission Date: 20150326
  Serious: Yes (Hospitalization, Other)
  Sender: FDA-Public Use
  Company Number: US-009507513-2010SP043248

PATIENT
  Sex: Female
  Weight: 56.7 kg

DRUGS (2)
  1. NUVARING [Suspect]
     Active Substance: ETHINYL ESTRADIOL\ETONOGESTREL
     Indication: CONTRACEPTION
     Dosage: UNK
     Route: 067
     Dates: start: 20040819, end: 200410
  2. NEXIUM [Concomitant]
     Active Substance: ESOMEPRAZOLE MAGNESIUM
     Indication: PRODUCT USED FOR UNKNOWN INDICATION

REACTIONS (8)
  - Pneumonia [Unknown]
  - Pulmonary artery aneurysm [Unknown]
  - Nausea [Unknown]
  - Iron deficiency anaemia [Unknown]
  - Vomiting [Unknown]
  - Hepatic cyst [Unknown]
  - Pulmonary embolism [Unknown]
  - Abdominal pain [Unknown]

NARRATIVE: CASE EVENT DATE: 200410
